FAERS Safety Report 25986126 (Version 1)
Quarter: 2025Q4

REPORT INFORMATION
  Report Type: Spontaneous
  Country: EU (occurrence: EU)
  Receive Date: 20251031
  Receipt Date: 20251031
  Transmission Date: 20260117
  Serious: Yes (Hospitalization)
  Sender: ZAMBON
  Company Number: EU-ZAMBON-2025000669

PATIENT

DRUGS (3)
  1. FOSFOMYCIN TROMETHAMINE [Suspect]
     Active Substance: FOSFOMYCIN TROMETHAMINE
     Indication: Urinary tract infection
     Dosage: UNK
     Route: 048
     Dates: start: 20250919, end: 20250919
  2. BACTRIM [Suspect]
     Active Substance: SULFAMETHOXAZOLE\TRIMETHOPRIM
     Indication: Urinary tract infection
     Dosage: UNK
     Route: 048
     Dates: start: 20250927, end: 20251005
  3. PIVMECILLINAM HYDROCHLORIDE [Suspect]
     Active Substance: PIVMECILLINAM HYDROCHLORIDE
     Indication: Urinary tract infection
     Dosage: UNK
     Route: 048
     Dates: start: 20250926, end: 20250927

REACTIONS (1)
  - Rash maculo-papular [Not Recovered/Not Resolved]

NARRATIVE: CASE EVENT DATE: 20251005
